FAERS Safety Report 5211025-0 (Version None)
Quarter: 2006Q4

REPORT INFORMATION
  Report Type: 
  Country: None (occurrence: None)
  Receive Date: 20061114
  Receipt Date: 20060810
  Transmission Date: 20070319
  Serious: No
  Sender: FDA-Public Use
  Company Number: S06-USA-03214-01

PATIENT
  Sex: Female

DRUGS (1)
  1. NAMENDA [Suspect]
     Dates: start: 20060701

REACTIONS (1)
  - AMNESIA [None]
